FAERS Safety Report 16331095 (Version 1)
Quarter: 2019Q2

REPORT INFORMATION
  Report Type: Spontaneous
  Country: US (occurrence: US)
  Receive Date: 20190517
  Receipt Date: 20190517
  Transmission Date: 20190711
  Serious: Yes (Other)
  Sender: FDA-Public Use
  Company Number: None

PATIENT
  Age: 54 Year
  Sex: Female
  Weight: 85.5 kg

DRUGS (3)
  1. INVEGA SUSTENNA [Suspect]
     Active Substance: PALIPERIDONE PALMITATE
     Indication: SCHIZOPHRENIA
     Dosage: ?          OTHER FREQUENCY:MONTHLY INJECTIONS;?
     Route: 030
     Dates: start: 20190123, end: 20190223
  2. INVEGA SUSTENNA [Suspect]
     Active Substance: PALIPERIDONE PALMITATE
     Indication: BIPOLAR DISORDER
     Dosage: ?          OTHER FREQUENCY:MONTHLY INJECTIONS;?
     Route: 030
     Dates: start: 20190123, end: 20190223
  3. SAPHRIS [Concomitant]
     Active Substance: ASENAPINE MALEATE

REACTIONS (9)
  - Drug ineffective [None]
  - Blood pressure increased [None]
  - Emotional poverty [None]
  - Insomnia [None]
  - Depression [None]
  - Dyspnoea [None]
  - Pain in extremity [None]
  - Gait disturbance [None]
  - Injection site pain [None]
